FAERS Safety Report 12407286 (Version 2)
Quarter: 2016Q4

REPORT INFORMATION
  Report Type: Spontaneous
  Country: US (occurrence: US)
  Receive Date: 20160526
  Receipt Date: 20161201
  Transmission Date: 20170207
  Serious: No
  Sender: FDA-Public Use
  Company Number: US-MYLANLABS-2016M1017469

PATIENT
  Age: 63 Year
  Sex: Female
  Weight: 73.92 kg

DRUGS (4)
  1. CLONAZEPAM. [Concomitant]
     Active Substance: CLONAZEPAM
     Indication: ANXIETY
     Dosage: 0.5 MG, PRN
     Route: 048
  2. ESOMEPRAZOLE MAGNESIUM D/R [Suspect]
     Active Substance: ESOMEPRAZOLE MAGNESIUM
     Indication: GASTROOESOPHAGEAL REFLUX DISEASE
     Dosage: 40 MG, AM
     Route: 048
     Dates: start: 201601
  3. SIMVASTATIN. [Concomitant]
     Active Substance: SIMVASTATIN
     Indication: BLOOD CHOLESTEROL
     Dosage: 40 MG, QD (AT NIGHT)
     Route: 048
  4. ALPRAZOLAM. [Concomitant]
     Active Substance: ALPRAZOLAM
     Dosage: 0.5 MG, QD (1-2 TABLETS AT NIGHT)
     Route: 048

REACTIONS (4)
  - Lip swelling [Not Recovered/Not Resolved]
  - Dry mouth [Not Recovered/Not Resolved]
  - Cheilitis [Not Recovered/Not Resolved]
  - Lip pain [Not Recovered/Not Resolved]

NARRATIVE: CASE EVENT DATE: 201601
